FAERS Safety Report 6620538-6 (Version None)
Quarter: 2010Q1

REPORT INFORMATION
  Report Type: 
  Country: None (occurrence: None)
  Receive Date: 20100309
  Receipt Date: 20100303
  Transmission Date: 20100710
  Serious: Yes (Death, Other)
  Sender: FDA-Public Use
  Company Number: TR-ELI_LILLY_AND_COMPANY-TR201003001145

PATIENT
  Sex: Male

DRUGS (6)
  1. HUMULIN N [Suspect]
     Indication: DIABETES MELLITUS
     Dosage: 20 IU, EACH MORNING
     Route: 058
     Dates: start: 20021002
  2. HUMULIN N [Suspect]
     Dosage: 31 IU, EACH EVENING
     Route: 058
     Dates: start: 20021002
  3. PLAVIX [Concomitant]
     Indication: VASCULAR OCCLUSION
     Dosage: UNK UNK, DAILY (1/D)
     Route: 048
  4. TRENTAL [Concomitant]
     Indication: VASCULAR OCCLUSION
     Dosage: 400 MG, DAILY (1/D)
     Route: 048
  5. TEBOKAN [Concomitant]
     Indication: VASCULAR OCCLUSION
     Dosage: UNK UNK, DAILY (1/D)
     Route: 048
  6. BECOZYME [Concomitant]
     Indication: VITAMIN SUPPLEMENTATION
     Dosage: UNK UNK, DAILY (1/D)
     Route: 048

REACTIONS (1)
  - BRAIN OEDEMA [None]
